FAERS Safety Report 9690055 (Version 2)
Quarter: 2014Q1

REPORT INFORMATION
  Report Type: Spontaneous
  Country: GB (occurrence: GB)
  Receive Date: 20131115
  Receipt Date: 20140219
  Transmission Date: 20141002
  Serious: Yes (Other)
  Sender: FDA-Public Use
  Company Number: GB-RANBAXY-2013R1-75005

PATIENT
  Age: 36 Year
  Sex: Female

DRUGS (1)
  1. ACICLOVIR [Suspect]
     Indication: GENITAL HERPES
     Dosage: 400 MG, TID
     Route: 048

REACTIONS (2)
  - Abortion spontaneous [Unknown]
  - Vaginal haemorrhage [Unknown]
